FAERS Safety Report 7465149-8 (Version None)
Quarter: 2011Q2

REPORT INFORMATION
  Report Type: 
  Country: None (occurrence: None)
  Receive Date: 20110509
  Receipt Date: 20110428
  Transmission Date: 20111010
  Serious: Yes (Other)
  Sender: FDA-Public Use
  Company Number: US-JNJFOC-20110500053

PATIENT
  Sex: Male
  Weight: 102.06 kg

DRUGS (6)
  1. LEVAQUIN [Suspect]
     Indication: RESPIRATORY DISORDER
     Dosage: FOR 10 DAYS STOPPED IN 2007
     Route: 048
  2. LEVAQUIN [Suspect]
     Indication: DYSPNOEA
     Dosage: FOR 10 DAYS STOPPED IN 2007
     Route: 048
  3. ZEGERID [Concomitant]
     Indication: GASTRIC DISORDER
     Route: 048
  4. LEVAQUIN [Suspect]
     Dosage: FOR 14 DAYS AND STOPPED IN 2007
     Route: 048
  5. LEVAQUIN [Suspect]
     Dosage: FOR 14 DAYS AND STOPPED IN 2007
     Route: 048
  6. NASONEX [Concomitant]
     Dosage: NASAL SPRAY
     Route: 045

REACTIONS (3)
  - GENERAL SYMPTOM [None]
  - AMYOTROPHIC LATERAL SCLEROSIS [None]
  - PALPITATIONS [None]
